FAERS Safety Report 6692523-X (Version None)
Quarter: 2010Q2

REPORT INFORMATION
  Report Type: 
  Country: None (occurrence: None)
  Receive Date: 20100422
  Receipt Date: 20100415
  Transmission Date: 20101027
  Serious: Yes (Hospitalization)
  Sender: FDA-Public Use
  Company Number: B0648886A

PATIENT
  Sex: Female

DRUGS (4)
  1. AUGMENTIN '125' [Suspect]
     Indication: SKIN ULCER
     Dosage: 1G TWICE PER DAY
     Route: 048
     Dates: start: 20100317, end: 20100318
  2. RAMIPRIL [Concomitant]
     Route: 065
  3. DIURESIX [Concomitant]
     Route: 065
  4. REPAGLINIDE [Concomitant]
     Route: 065

REACTIONS (3)
  - COMA [None]
  - FACE OEDEMA [None]
  - HYPOXIA [None]
